FAERS Safety Report 4506581-1 (Version None)
Quarter: 2004Q4

REPORT INFORMATION
  Report Type: 
  Country: None (occurrence: None)
  Receive Date: 20041117
  Receipt Date: 20041109
  Transmission Date: 20050328
  Serious: Yes (Hospitalization, Disabling)
  Sender: FDA-Public Use
  Company Number: 210203

PATIENT
  Age: 43 Year
  Sex: Male
  Weight: 53 kg

DRUGS (13)
  1. XOLAIR [Suspect]
     Indication: ASTHMA
     Dosage: 375 MG, Q2W, SUBCUTANEOUS
     Route: 058
     Dates: start: 20031230, end: 20040824
  2. SINGULAIR [Concomitant]
  3. FLOVENT [Concomitant]
  4. TYLENOL #3 (UNITED STATES) (CODEINE PHOSPHATE, ACETAMINOPHEN) [Concomitant]
  5. LISINOPRIL [Concomitant]
  6. HYDROCHLOROTHIAZIDE [Concomitant]
  7. PROVENTIL (ALBUTEROL SULFATE, ALBUTEROL) [Concomitant]
  8. VANCOMYCIN [Concomitant]
  9. ZOSYN (TAZOBACTAM SODIUM, PIPERACILLIN SODIUM) [Concomitant]
  10. NITROPASTE (NITROGLYCERIN) [Concomitant]
  11. FORADIL [Concomitant]
  12. NASONEX [Concomitant]
  13. CEPHALEXIN [Concomitant]

REACTIONS (25)
  - ALLERGIC GRANULOMATOUS ANGIITIS [None]
  - BLOOD ALBUMIN DECREASED [None]
  - BLOOD CREATINE PHOSPHOKINASE INCREASED [None]
  - BLOOD FOLATE DECREASED [None]
  - BLOOD IMMUNOGLOBULIN E INCREASED [None]
  - BLOOD SODIUM DECREASED [None]
  - CERVICOBRACHIAL SYNDROME [None]
  - DEEP VEIN THROMBOSIS [None]
  - EOSINOPHILIA [None]
  - GENERAL PHYSICAL HEALTH DETERIORATION [None]
  - IMPAIRED WORK ABILITY [None]
  - INAPPROPRIATE ANTIDIURETIC HORMONE SECRETION [None]
  - INTERVERTEBRAL DISC PROTRUSION [None]
  - LUMBAR RADICULOPATHY [None]
  - LUMBAR SPINAL STENOSIS [None]
  - MONONEUROPATHY MULTIPLEX [None]
  - NUCLEAR MAGNETIC RESONANCE IMAGING BRAIN ABNORMAL [None]
  - RASH [None]
  - RED BLOOD CELL SEDIMENTATION RATE INCREASED [None]
  - RHEUMATOID FACTOR POSITIVE [None]
  - SPONDYLOSIS [None]
  - THERAPY NON-RESPONDER [None]
  - VASCULITIS [None]
  - WHEELCHAIR USER [None]
  - WHITE BLOOD CELL COUNT INCREASED [None]
